FAERS Safety Report 8297810-X (Version None)
Quarter: 2012Q2

REPORT INFORMATION
  Report Type: 
  Country: None (occurrence: None)
  Receive Date: 20120419
  Receipt Date: 20120412
  Transmission Date: 20120825
  Serious: Yes (Hospitalization, Other)
  Sender: FDA-Public Use
  Company Number: US-BAYER-2012-005458

PATIENT
  Age: 17 Year
  Sex: Female
  Weight: 76.19 kg

DRUGS (6)
  1. YAZ [Suspect]
     Dosage: UNK
     Route: 048
     Dates: start: 20070101, end: 20100101
  2. DROSPIRENONE AND ETHINYL ESTRADIOL [Suspect]
     Dosage: UNK
     Route: 048
     Dates: start: 20070101, end: 20100101
  3. IBUPROFEN [Concomitant]
     Dosage: UNK
     Dates: start: 20070101
  4. SPIRONOLACTONE [Concomitant]
     Dosage: UNK
     Dates: start: 20080101, end: 20090101
  5. ALDACTONE [Concomitant]
  6. MOTRIN [Concomitant]

REACTIONS (2)
  - PAIN [None]
  - NEPHROLITHIASIS [None]
